FAERS Safety Report 15716647 (Version 1)
Quarter: 2018Q4

REPORT INFORMATION
  Report Type: Spontaneous
  Country: US (occurrence: US)
  Receive Date: 20181213
  Receipt Date: 20181213
  Transmission Date: 20190205
  Serious: Yes (Hospitalization)
  Sender: FDA-Public Use
  Company Number: US-ASTRAZENECA-2018SF62011

PATIENT
  Age: 23894 Day
  Sex: Female
  Weight: 54.4 kg

DRUGS (9)
  1. SYMBICORT [Suspect]
     Active Substance: BUDESONIDE\FORMOTEROL FUMARATE DIHYDRATE
     Indication: CHRONIC OBSTRUCTIVE PULMONARY DISEASE
     Dosage: 160-4.5MCG 2 PUFFS TWO TIMES A DAY
     Route: 055
     Dates: start: 2008
  2. GENERIC LIPITOR [Concomitant]
     Active Substance: ATORVASTATIN CALCIUM
  3. FASENRA [Suspect]
     Active Substance: BENRALIZUMAB
     Indication: ASTHMA PROPHYLAXIS
     Route: 058
     Dates: start: 20180719
  4. FASENRA [Suspect]
     Active Substance: BENRALIZUMAB
     Indication: CHRONIC OBSTRUCTIVE PULMONARY DISEASE
     Route: 058
     Dates: start: 20180719
  5. SYMBICORT [Suspect]
     Active Substance: BUDESONIDE\FORMOTEROL FUMARATE DIHYDRATE
     Indication: ASTHMA PROPHYLAXIS
     Dosage: 160-4.5MCG 2 PUFFS TWO TIMES A DAY
     Route: 055
     Dates: start: 2008
  6. SPIRIVA [Concomitant]
     Active Substance: TIOTROPIUM BROMIDE MONOHYDRATE
     Indication: CHRONIC OBSTRUCTIVE PULMONARY DISEASE
     Dosage: DAILY
     Route: 055
  7. GENERIC LOTENSIN [Concomitant]
  8. FASENRA [Suspect]
     Active Substance: BENRALIZUMAB
     Indication: BRONCHITIS CHRONIC
     Route: 058
     Dates: start: 20180719
  9. XOPENEX [Concomitant]
     Active Substance: LEVALBUTEROL HYDROCHLORIDE
     Indication: PROPHYLAXIS
     Route: 055

REACTIONS (7)
  - Malaise [Recovered/Resolved]
  - Asthma [Unknown]
  - Intentional product misuse [Recovered/Resolved]
  - Oxygen saturation decreased [Recovered/Resolved]
  - Cough [Recovered/Resolved]
  - Respiratory disorder [Recovered/Resolved]
  - Bronchitis chronic [Unknown]
